FAERS Safety Report 10989345 (Version 10)
Quarter: 2016Q1

REPORT INFORMATION
  Report Type: Spontaneous
  Country: US (occurrence: US)
  Receive Date: 20150406
  Receipt Date: 20160105
  Transmission Date: 20160525
  Serious: Yes (Other)
  Sender: FDA-Public Use
  Company Number: US-PFIZER INC-2015112714

PATIENT
  Age: 54 Year
  Sex: Female
  Weight: 147 kg

DRUGS (12)
  1. SUTENT [Suspect]
     Active Substance: SUNITINIB MALATE
     Indication: METASTATIC RENAL CELL CARCINOMA
     Dosage: 50 MG CYCLIC (3WEEKS ON/2WEEKS OFF)
     Dates: start: 20150126, end: 2015
  2. BACLOFEN. [Concomitant]
     Active Substance: BACLOFEN
     Dosage: UNK
  3. COZAAR [Concomitant]
     Active Substance: LOSARTAN POTASSIUM
     Dosage: UNK
     Dates: start: 201506
  4. LASIX [Concomitant]
     Active Substance: FUROSEMIDE
     Dosage: UNK
     Dates: start: 201508
  5. CARBAMAZEPIN [Concomitant]
     Active Substance: CARBAMAZEPINE
     Indication: TRIGEMINAL NEURALGIA
     Dosage: UNK
     Dates: start: 201407
  6. GABAPENTIN. [Concomitant]
     Active Substance: GABAPENTIN
     Indication: TRIGEMINAL NEURALGIA
     Dosage: UNK
     Dates: start: 201503
  7. SUTENT [Suspect]
     Active Substance: SUNITINIB MALATE
     Dosage: 28 DAYS ON/14DAYS OFF
     Dates: start: 2015, end: 2015
  8. SUTENT [Suspect]
     Active Substance: SUNITINIB MALATE
     Dosage: 75 MG, 1X/DAY
     Dates: start: 2015, end: 20151002
  9. SYMBICORT [Concomitant]
     Active Substance: BUDESONIDE\FORMOTEROL FUMARATE DIHYDRATE
     Dosage: UNK
  10. SUTENT [Suspect]
     Active Substance: SUNITINIB MALATE
     Dosage: 50 MG, CYCLIC (28 DAYS ON/14 DAYS OFF)
     Dates: start: 2015, end: 2015
  11. SUTENT [Suspect]
     Active Substance: SUNITINIB MALATE
     Dosage: 75 MG, CYCLIC (28 DAYS ON/14 DAYS OFF)
     Dates: start: 2015, end: 2015
  12. LEVOTHYROXINE. [Concomitant]
     Active Substance: LEVOTHYROXINE
     Dosage: UNK
     Dates: start: 201508

REACTIONS (23)
  - Dry skin [Recovered/Resolved]
  - Mastoiditis [Recovered/Resolved]
  - Meniscus injury [Unknown]
  - Trigeminal neuralgia [Unknown]
  - Rash [Recovered/Resolved]
  - Depressed mood [Unknown]
  - Joint injury [Unknown]
  - Pain in extremity [Not Recovered/Not Resolved]
  - Glossodynia [Recovered/Resolved]
  - Oral pain [Recovered/Resolved]
  - Speech disorder [Recovered/Resolved]
  - Feeling abnormal [Unknown]
  - Disease progression [Unknown]
  - Diarrhoea [Not Recovered/Not Resolved]
  - Muscle spasms [Unknown]
  - Dysgeusia [Recovered/Resolved]
  - Tongue dry [Recovered/Resolved]
  - Dry mouth [Recovered/Resolved]
  - Oral disorder [Recovered/Resolved]
  - Pain [Unknown]
  - Tongue disorder [Recovered/Resolved]
  - Metastatic renal cell carcinoma [Unknown]
  - Blister [Not Recovered/Not Resolved]

NARRATIVE: CASE EVENT DATE: 2015
